FAERS Safety Report 5332769-6 (Version None)
Quarter: 2007Q2

REPORT INFORMATION
  Report Type: 
  Country: None (occurrence: None)
  Receive Date: 20070518
  Receipt Date: 20070508
  Transmission Date: 20071010
  Serious: Yes (Other)
  Sender: FDA-Public Use
  Company Number: 16477

PATIENT
  Age: 56 Year
  Sex: Male

DRUGS (4)
  1. CARBOPLATIN [Suspect]
     Indication: LUNG NEOPLASM MALIGNANT
  2. DEXAMETHASONE TAB [Suspect]
     Dosage: 6 MG
  3. GEMCITABINE [Suspect]
     Indication: LUNG NEOPLASM MALIGNANT
  4. MOVICOL /01053601/ [Suspect]
     Indication: FAECALOMA

REACTIONS (3)
  - BLOOD ALBUMIN DECREASED [None]
  - HEPATOTOXICITY [None]
  - OEDEMA PERIPHERAL [None]
